FAERS Safety Report 4804868-6 (Version None)
Quarter: 2005Q4

REPORT INFORMATION
  Report Type: 
  Country: None (occurrence: None)
  Receive Date: 20051020
  Receipt Date: 20051007
  Transmission Date: 20060501
  Serious: Yes (Other)
  Sender: FDA-Public Use
  Company Number: 2005UW15102

PATIENT
  Age: 33 Year
  Sex: Female
  Weight: 73.9 kg

DRUGS (1)
  1. SEROQUEL [Suspect]
     Route: 050
     Dates: start: 20040101

REACTIONS (4)
  - ABORTION SPONTANEOUS [None]
  - COMPLICATION OF PREGNANCY [None]
  - INFERTILITY [None]
  - TRANSMISSION OF DRUG VIA SEMEN [None]
